FAERS Safety Report 16372124 (Version 31)
Quarter: 2022Q2

REPORT INFORMATION
  Report Type: Spontaneous
  Country: IL (occurrence: IL)
  Receive Date: 20190530
  Receipt Date: 20220617
  Transmission Date: 20220720
  Serious: Yes (Hospitalization, Other)
  Sender: FDA-Public Use
  Company Number: IL-PFIZER INC-2019086542

PATIENT
  Age: 78 Year
  Sex: Female

DRUGS (3)
  1. ELELYSO [Suspect]
     Active Substance: TALIGLUCERASE ALFA
     Indication: Gaucher^s disease
     Dosage: 1600 UNITS/ 1400 UNITS PER INFUSION TWICE A MONTH, ALTERNATELY
     Route: 042
  2. ELELYSO [Suspect]
     Active Substance: TALIGLUCERASE ALFA
     Dosage: 1400/1600 UNITS PER INFUSION ALTERNATELY TWICE A MONTH
     Route: 042
  3. ELELYSO [Suspect]
     Active Substance: TALIGLUCERASE ALFA
     Dosage: 1800\1600IU (9\8 VIALS), EVERY OTHER WEEK
     Route: 042
     Dates: start: 20220612

REACTIONS (13)
  - Blood sodium decreased [Recovered/Resolved]
  - Hypertension [Unknown]
  - Fall [Not Recovered/Not Resolved]
  - Rib fracture [Unknown]
  - Femoral neck fracture [Unknown]
  - Injury [Unknown]
  - Pelvic fracture [Not Recovered/Not Resolved]
  - Head injury [Not Recovered/Not Resolved]
  - Asthenia [Unknown]
  - Alopecia [Unknown]
  - Malaise [Unknown]
  - Fatigue [Unknown]
  - Inappropriate schedule of product administration [Unknown]

NARRATIVE: CASE EVENT DATE: 20190401
